FAERS Safety Report 23108231 (Version 1)
Quarter: 2023Q4

REPORT INFORMATION
  Report Type: Report from Study
  Country: US (occurrence: US)
  Receive Date: 20231026
  Receipt Date: 20231026
  Transmission Date: 20240109
  Serious: Yes (Hospitalization, Other)
  Sender: FDA-Public Use
  Company Number: US-ABBVIE-5462704

PATIENT
  Age: 28 Year
  Sex: Male

DRUGS (1)
  1. HUMIRA [Suspect]
     Active Substance: ADALIMUMAB
     Indication: Crohn^s disease
     Dosage: FORM STRENGTH: 40MG
     Route: 058
     Dates: start: 201302

REACTIONS (4)
  - Subcutaneous abscess [Recovering/Resolving]
  - Crohn^s disease [Recovering/Resolving]
  - Colitis ulcerative [Unknown]
  - Surgical failure [Unknown]

NARRATIVE: CASE EVENT DATE: 20230926
